FAERS Safety Report 9274752 (Version 1)
Quarter: 2013Q2

REPORT INFORMATION
  Report Type: Spontaneous
  Country: US (occurrence: None)
  Receive Date: 20130430
  Receipt Date: 20130430
  Transmission Date: 20140414
  Serious: No
  Sender: FDA-Public Use
  Company Number: None

PATIENT
  Age: 76 Year
  Sex: Female
  Weight: 52.16 kg

DRUGS (1)
  1. CEFDINIR [Suspect]
     Indication: BACTERIAL INFECTION
     Dosage: 8AM 8PM
     Dates: end: 20130326

REACTIONS (4)
  - Faeces discoloured [None]
  - Haemorrhage [None]
  - Tremor [None]
  - Pyrexia [None]
